FAERS Safety Report 13834249 (Version 1)
Quarter: 2017Q3

REPORT INFORMATION
  Report Type: Spontaneous
  Country: US (occurrence: US)
  Receive Date: 20170804
  Receipt Date: 20170804
  Transmission Date: 20171127
  Serious: Yes (Disabling)
  Sender: FDA-Public Use
  Company Number: None

PATIENT
  Age: 66 Year
  Sex: Male
  Weight: 113.5 kg

DRUGS (3)
  1. BLOOD PRESSURE PILL [Concomitant]
     Active Substance: UNSPECIFIED INGREDIENT
  2. TAMSULOSIN [Suspect]
     Active Substance: TAMSULOSIN
     Indication: NOCTURIA
     Dosage: 1 PILL AT NIGHT
     Route: 048
     Dates: start: 20170401
  3. MENS VITAMINS [Concomitant]

REACTIONS (2)
  - Back disorder [None]
  - Headache [None]

NARRATIVE: CASE EVENT DATE: 20170401
